FAERS Safety Report 8434451-5 (Version None)
Quarter: 2012Q2

REPORT INFORMATION
  Report Type: 
  Country: None (occurrence: None)
  Receive Date: 20120614
  Receipt Date: 20120605
  Transmission Date: 20120825
  Serious: Yes (Hospitalization, Other)
  Sender: FDA-Public Use
  Company Number: US-BRISTOL-MYERS SQUIBB COMPANY-16663015

PATIENT
  Age: 70 Year
  Sex: Female
  Weight: 57 kg

DRUGS (2)
  1. CYTARABINE [Suspect]
     Indication: ACUTE MYELOID LEUKAEMIA
     Dosage: LAST DOSE ON 03MAR12,17APR12;9540MG,NO OF COURSES: 2
     Route: 042
     Dates: start: 20120227
  2. SPRYCEL [Suspect]
     Indication: ACUTE MYELOID LEUKAEMIA
     Dosage: D6-26,LAST DOSE ON 23MAR12,06MAY12;1100MG,NO OF COURSES: 2
     Route: 048
     Dates: start: 20120227

REACTIONS (9)
  - INFECTION [None]
  - FAILURE TO THRIVE [None]
  - DEHYDRATION [None]
  - MUSCULAR WEAKNESS [None]
  - NEUTROPHIL COUNT DECREASED [None]
  - NAUSEA [None]
  - DECREASED APPETITE [None]
  - FATIGUE [None]
  - WHITE BLOOD CELL COUNT DECREASED [None]
